FAERS Safety Report 4733004-X (Version None)
Quarter: 2005Q3

REPORT INFORMATION
  Report Type: 
  Country: None (occurrence: None)
  Receive Date: 20050725
  Receipt Date: 20040521
  Transmission Date: 20060218
  Serious: Yes (Other)
  Sender: FDA-Public Use
  Company Number: WAES 0405USA01671

PATIENT
  Age: 70 Year
  Sex: Male
  Weight: 92.9874 kg

DRUGS (7)
  1. VIOXX [Suspect]
     Indication: ARTHRALGIA
     Dosage: 25 MG/DAILY/PO
     Route: 048
     Dates: start: 20010901, end: 20020901
  2. VIOXX [Suspect]
     Indication: MUSCULOSKELETAL STIFFNESS
     Dosage: 25 MG/DAILY/PO
     Route: 048
     Dates: start: 20010901, end: 20020901
  3. ACCUPRIL [Concomitant]
  4. LEVOXYL [Concomitant]
  5. NORVASC [Concomitant]
  6. ZEBETA [Concomitant]
  7. AMIODARONE [Concomitant]

REACTIONS (1)
  - GASTROINTESTINAL HAEMORRHAGE [None]
